FAERS Safety Report 24078304 (Version 2)
Quarter: 2024Q3

REPORT INFORMATION
  Report Type: Spontaneous
  Country: JP (occurrence: JP)
  Receive Date: 20240711
  Receipt Date: 20240722
  Transmission Date: 20241017
  Serious: Yes (Other)
  Sender: MACLEODS
  Company Number: JP-MACLEODS PHARMA-MAC2024048104

PATIENT

DRUGS (1)
  1. AMLODIPINE [Suspect]
     Active Substance: AMLODIPINE BESYLATE
     Indication: Hypertension
     Route: 065

REACTIONS (2)
  - Haemorrhage [Unknown]
  - Gingival hypertrophy [Unknown]
